FAERS Safety Report 7220380 (Version 2)
Quarter: 2018Q1

REPORT INFORMATION
  Report Type: Spontaneous
  Country: FR (occurrence: FR)
  Receive Date: 20091216
  Receipt Date: 20180104
  Transmission Date: 20180509
  Serious: Yes (Hospitalization)
  Sender: FDA-Public Use
  Company Number: FR-JNJFOC-20091202888

PATIENT
  Age: 47 Year
  Sex: Male
  Weight: 45 kg

DRUGS (10)
  1. AERIUS [Concomitant]
     Active Substance: DESLORATADINE
     Route: 065
  2. RISPERDAL [Suspect]
     Active Substance: RISPERIDONE
     Indication: WRONG PATIENT RECEIVED MEDICATION
     Route: 048
     Dates: start: 20091103, end: 20091103
  3. DEPAKOTE [Suspect]
     Active Substance: DIVALPROEX SODIUM
     Indication: WRONG PATIENT RECEIVED MEDICATION
     Route: 048
     Dates: start: 20091103, end: 20091103
  4. LOXAPAC [Suspect]
     Active Substance: LOXAPINE
     Indication: WRONG PATIENT RECEIVED MEDICATION
     Route: 048
     Dates: start: 20091103, end: 20091103
  5. TERCIAN [Suspect]
     Active Substance: CYAMEMAZINE
     Indication: WRONG PATIENT RECEIVED MEDICATION
     Route: 048
     Dates: start: 20091103, end: 20091103
  6. PARKINANE [Suspect]
     Active Substance: TRIHEXYPHENIDYL HYDROCHLORIDE
     Indication: WRONG PATIENT RECEIVED MEDICATION
     Route: 048
     Dates: start: 20091103, end: 20091103
  7. DEBRIDAT [Concomitant]
     Active Substance: TRIMEBUTINE MALEATE
     Route: 065
  8. CRESTOR [Concomitant]
     Active Substance: ROSUVASTATIN CALCIUM
     Route: 065
  9. ZOLOFT [Suspect]
     Active Substance: SERTRALINE HYDROCHLORIDE
     Indication: WRONG PATIENT RECEIVED MEDICATION
     Route: 048
     Dates: start: 20091103, end: 20091103
  10. SPAGULAX [Concomitant]
     Active Substance: PLANTAGO OVATA SEED
     Route: 065

REACTIONS (5)
  - Drug dispensing error [Unknown]
  - Bradycardia [Recovered/Resolved]
  - Wrong patient received medication [Unknown]
  - Somnolence [Recovered/Resolved]
  - Medication error [Unknown]

NARRATIVE: CASE EVENT DATE: 20091103
